FAERS Safety Report 7489131-X (Version None)
Quarter: 2011Q2

REPORT INFORMATION
  Report Type: 
  Country: None (occurrence: None)
  Receive Date: 20110518
  Receipt Date: 20110510
  Transmission Date: 20111010
  Serious: Yes (Death, Other)
  Sender: FDA-Public Use
  Company Number: US-CELGENEUS-163-21880-11051310

PATIENT
  Age: 90 Year
  Sex: Male

DRUGS (8)
  1. REVLIMID [Suspect]
     Dosage: 10 MILLIGRAM
     Route: 048
     Dates: start: 20100801, end: 20101001
  2. BISACODYL [Concomitant]
     Route: 065
  3. HYDROMORPHONE HCL [Concomitant]
     Route: 065
  4. SENNOSIDES [Concomitant]
     Route: 065
  5. REVLIMID [Suspect]
     Indication: MULTIPLE MYELOMA
     Dosage: 10 MILLIGRAM
     Route: 048
     Dates: start: 20090801, end: 20100301
  6. REVLIMID [Suspect]
     Dosage: 15 MILLIGRAM
     Route: 048
     Dates: start: 20101101, end: 20101201
  7. POTASSIUM CHLORIDE [Concomitant]
     Route: 065
  8. MORPHINE [Concomitant]
     Route: 065

REACTIONS (5)
  - RENAL TUBULAR NECROSIS [None]
  - COLON CANCER METASTATIC [None]
  - DEATH [None]
  - URINARY TRACT INFECTION [None]
  - HAEMATURIA [None]
